FAERS Safety Report 7699052-5 (Version None)
Quarter: 2011Q3

REPORT INFORMATION
  Report Type: 
  Country: None (occurrence: None)
  Receive Date: 20110819
  Receipt Date: 20110808
  Transmission Date: 20111222
  Serious: Yes (Hospitalization, Other)
  Sender: FDA-Public Use
  Company Number: US-ASTRAZENECA-2011SE47983

PATIENT
  Age: 82 Year
  Sex: Female

DRUGS (1)
  1. NEXIUM [Suspect]
     Route: 048

REACTIONS (7)
  - SPINAL FUSION ACQUIRED [None]
  - DIVERTICULECTOMY [None]
  - DIVERTICULITIS [None]
  - SURGERY [None]
  - FALL [None]
  - SKIN EXFOLIATION [None]
  - SWELLING [None]
